FAERS Safety Report 15519288 (Version 1)
Quarter: 2018Q4

REPORT INFORMATION
  Report Type: Report from Study
  Country: US (occurrence: US)
  Receive Date: 20181017
  Receipt Date: 20181017
  Transmission Date: 20190205
  Serious: Yes (Hospitalization)
  Sender: FDA-Public Use
  Company Number: US-REGENERON PHARMACEUTICALS, INC.-2017-18743

PATIENT

DRUGS (30)
  1. TEMAZEPAM. [Concomitant]
     Active Substance: TEMAZEPAM
     Indication: INSOMNIA
     Dosage: 15 MG, PRN
     Route: 048
     Dates: start: 20170710, end: 20170728
  2. METRONIDAZOLE. [Concomitant]
     Active Substance: METRONIDAZOLE
     Indication: DERMATITIS ACNEIFORM
     Dosage: 0.75 %, BID PRN
     Route: 061
     Dates: start: 20161123
  3. SULFAMETHOXAZOLE AND TRIMETHOPRIM [Concomitant]
     Active Substance: SULFAMETHOXAZOLE\TRIMETHOPRIM
     Indication: PROPHYLAXIS
     Dosage: 800/160 MG, TIW
     Route: 048
     Dates: start: 20170605, end: 20170710
  4. REGN1979 [Suspect]
     Active Substance: INVESTIGATIONAL PRODUCT
     Dosage: 1000 ?G, WEEKLY
     Route: 042
     Dates: start: 20170717, end: 20170718
  5. HYDROMORPHONE [Concomitant]
     Active Substance: HYDROMORPHONE
     Indication: PAIN
     Dosage: 1 MG, OTO
     Route: 042
     Dates: start: 20170710, end: 20170710
  6. ALBUTEROL                          /00139501/ [Concomitant]
     Active Substance: ALBUTEROL
     Indication: WHEEZING
     Dosage: 4-8 PUFFS, AS NECESSARY
     Route: 055
     Dates: start: 20170710, end: 20170711
  7. METHADONE [Concomitant]
     Active Substance: METHADONE HYDROCHLORIDE
     Indication: SCIATICA
     Dosage: 10 MG, BID
     Route: 048
     Dates: start: 20170710, end: 20170712
  8. GABAPENTINE [Concomitant]
     Active Substance: GABAPENTIN
     Indication: PAIN
     Dosage: 400 MG, Q8H
     Route: 048
     Dates: start: 20170710, end: 20170711
  9. NYSTATIN. [Concomitant]
     Active Substance: NYSTATIN
     Indication: ORAL CANDIDIASIS
     Dosage: 100000 UT, QID
     Route: 050
     Dates: start: 20170710
  10. DULOXETINE DR [Concomitant]
     Active Substance: DULOXETINE
     Indication: PAIN
     Dosage: 30 MG, QD
     Route: 048
     Dates: start: 20170517, end: 20170803
  11. DOCUSATE SODIUM. [Concomitant]
     Active Substance: DOCUSATE SODIUM
     Indication: CONSTIPATION
     Dosage: 100 MG, BID
     Route: 048
     Dates: start: 20160504, end: 20170803
  12. ALLOPURINOL. [Concomitant]
     Active Substance: ALLOPURINOL
     Indication: GOUT
     Dosage: 300 MG, QD
     Route: 048
     Dates: start: 20160504
  13. CYCLOBENZAPRINE. [Concomitant]
     Active Substance: CYCLOBENZAPRINE
     Indication: CANCER PAIN
     Dosage: 10 MG, Q8H
     Route: 048
     Dates: start: 20170711, end: 20170803
  14. ALBUTEROL                          /00139501/ [Concomitant]
     Active Substance: ALBUTEROL
     Indication: HYPERSENSITIVITY
     Dosage: 2.5/3 MG/ML, AS NECESSARY
     Route: 055
     Dates: start: 20170711, end: 20170724
  15. FAMOTIDINE. [Concomitant]
     Active Substance: FAMOTIDINE
     Indication: PRODUCT USED FOR UNKNOWN INDICATION
     Dosage: 20 MG IN 50 ML NSS, AS NECESSARY
     Route: 042
     Dates: start: 20170710, end: 20170803
  16. LEVOFLOXACIN. [Concomitant]
     Active Substance: LEVOFLOXACIN
     Indication: URINARY TRACT INFECTION
     Dosage: 500 MG, QD
     Route: 048
     Dates: start: 20170710, end: 20170710
  17. REGN2810 [Suspect]
     Active Substance: CEMIPLIMAB
     Indication: NON-HODGKIN^S LYMPHOMA
     Dosage: 3 MG/KG, Q2WKS
     Route: 042
     Dates: start: 20170710, end: 20170710
  18. POLYETHYLENE GLYCOL COMPOUND [Concomitant]
     Indication: CONSTIPATION
     Dosage: 17 G, PRN
     Route: 048
     Dates: start: 20170710, end: 20170724
  19. ACYCLOVIR                          /00587301/ [Concomitant]
     Active Substance: ACYCLOVIR
     Indication: PROPHYLAXIS
     Dosage: 800 MG, Q12H
     Route: 048
     Dates: start: 20160423
  20. MORPHINE [Concomitant]
     Active Substance: MORPHINE
     Indication: SCIATICA
     Dosage: 90 MG, Q8H
     Route: 048
     Dates: start: 20170616, end: 20170712
  21. DEXAMETHASONE. [Concomitant]
     Active Substance: DEXAMETHASONE
     Indication: DISEASE PROGRESSION
     Dosage: 40 MG
     Route: 048
     Dates: start: 20170619, end: 20170708
  22. REGN1979 [Suspect]
     Active Substance: INVESTIGATIONAL PRODUCT
     Indication: NON-HODGKIN^S LYMPHOMA
     Dosage: 500 ?G, WEEKLY
     Route: 042
     Dates: start: 20170710, end: 20170710
  23. SENNA                              /00142201/ [Concomitant]
     Active Substance: SENNA LEAF
     Indication: CONSTIPATION
     Dosage: 17.2 MG, QD PRN
     Route: 048
     Dates: start: 20160527, end: 20170724
  24. METOPROLOL TARTRATE. [Concomitant]
     Active Substance: METOPROLOL TARTRATE
     Indication: HYPERTENSION
     Dosage: 50 MG, Q8H
     Route: 048
     Dates: start: 20170414, end: 20170714
  25. LORAZEPAM. [Concomitant]
     Active Substance: LORAZEPAM
     Indication: ANXIETY
     Dosage: 1 MG, Q6H
     Route: 048
     Dates: start: 20170710, end: 20170728
  26. CHLORHEXIDINE GLUCONATE. [Concomitant]
     Active Substance: CHLORHEXIDINE GLUCONATE
     Indication: PROPHYLAXIS
     Dosage: 1 DF, QD
     Route: 061
     Dates: start: 20170710, end: 20170803
  27. SENNOSIDE                          /00571901/ [Concomitant]
     Active Substance: SENNOSIDES A AND B
     Indication: CONSTIPATION
     Dosage: 17.2 MG, AS NECESSARY
     Route: 048
     Dates: start: 20170710, end: 20170724
  28. RIVAROXABAN [Concomitant]
     Active Substance: RIVAROXABAN
     Indication: DEEP VEIN THROMBOSIS
     Dosage: 20 MG, QD
     Route: 048
     Dates: start: 20160808
  29. CIPROFLOXACIN. [Concomitant]
     Active Substance: CIPROFLOXACIN
     Indication: URINARY TRACT INFECTION
     Dosage: 500 MG, BID
     Route: 048
     Dates: start: 20170706, end: 20170710
  30. MAGNESIUM OXIDE. [Concomitant]
     Active Substance: MAGNESIUM OXIDE
     Indication: HYPOMAGNESAEMIA
     Dosage: 800 MG, QD
     Route: 048
     Dates: start: 20170401, end: 20170710

REACTIONS (2)
  - Cytokine release syndrome [Not Recovered/Not Resolved]
  - Pelvic pain [Recovering/Resolving]

NARRATIVE: CASE EVENT DATE: 20170713
